FAERS Safety Report 9256657 (Version 1)
Quarter: 2013Q2

REPORT INFORMATION
  Report Type: Spontaneous
  Country: US (occurrence: US)
  Receive Date: 20130426
  Receipt Date: 20130426
  Transmission Date: 20140414
  Serious: No
  Sender: FDA-Public Use
  Company Number: US-009507513-1304USA014550

PATIENT
  Sex: Female

DRUGS (1)
  1. NUVARING [Suspect]
     Indication: CONTRACEPTION
     Dosage: 1 RING FOR THREE WEEKS
     Route: 067
     Dates: start: 201301, end: 20130307

REACTIONS (4)
  - Unintended pregnancy [Unknown]
  - Metrorrhagia [Recovered/Resolved]
  - Withdrawal bleed [Unknown]
  - Incorrect drug administration duration [Unknown]
